FAERS Safety Report 4503262-5 (Version None)
Quarter: 2004Q4

REPORT INFORMATION
  Report Type: 
  Country: None (occurrence: None)
  Receive Date: 20041112
  Receipt Date: 20041031
  Transmission Date: 20050328
  Serious: Yes (Death)
  Sender: FDA-Public Use
  Company Number: 2004085910

PATIENT
  Age: 73 Year
  Sex: Male

DRUGS (1)
  1. SULPERAZONE (SULBACTAM, CEFOPERAZONE) [Suspect]
     Indication: SEPSIS
     Dosage: 4.5 GRAM (1.5 GRAM, 3 IN 1 D), INTRAVENOUS
     Route: 042
     Dates: start: 20041027, end: 20041029

REACTIONS (3)
  - GASTROINTESTINAL HAEMORRHAGE [None]
  - HAEMATEMESIS [None]
  - REFUSAL OF TREATMENT BY RELATIVE [None]
